FAERS Safety Report 7137642-9 (Version None)
Quarter: 2010Q4

REPORT INFORMATION
  Report Type: 
  Country: None (occurrence: None)
  Receive Date: 20101206
  Receipt Date: 20101130
  Transmission Date: 20110411
  Serious: Yes (Death, Other)
  Sender: FDA-Public Use
  Company Number: US-GENZYME-FLUD-1000468

PATIENT
  Age: 60 Year
  Sex: Male

DRUGS (2)
  1. FLUDARA [Suspect]
     Indication: METASTATIC MALIGNANT MELANOMA
     Dosage: 25 MG/M2, QDX5
     Route: 065
  2. CYCLOPHOSPHAMIDE [Suspect]
     Indication: METASTATIC MALIGNANT MELANOMA
     Dosage: 60 MG/KG, QDX2
     Route: 065

REACTIONS (2)
  - MALIGNANT MELANOMA [None]
  - VISUAL ACUITY REDUCED [None]
